FAERS Safety Report 4754796-X (Version None)
Quarter: 2005Q3

REPORT INFORMATION
  Report Type: 
  Country: None (occurrence: None)
  Receive Date: 20050825
  Receipt Date: 20050811
  Transmission Date: 20060218
  Serious: Yes (Hospitalization)
  Sender: FDA-Public Use
  Company Number: CERZ-10981

PATIENT
  Age: 7 Year
  Sex: Female
  Weight: 22.4 kg

DRUGS (1)
  1. CEREZYME [Suspect]
     Indication: GAUCHER'S DISEASE
     Dosage: 1200 UNITS Q2WKS IV
     Route: 042

REACTIONS (7)
  - ARTHRALGIA [None]
  - JUVENILE ARTHRITIS [None]
  - OEDEMA PERIPHERAL [None]
  - RESPIRATORY TRACT INFECTION [None]
  - RHEUMATIC FEVER [None]
  - STREPTOCOCCAL INFECTION [None]
  - THERAPY NON-RESPONDER [None]
